FAERS Safety Report 9255955 (Version 2)
Quarter: 2013Q2

REPORT INFORMATION
  Report Type: Spontaneous
  Country: US (occurrence: US)
  Receive Date: 20130425
  Receipt Date: 20130515
  Transmission Date: 20140414
  Serious: Yes (Other)
  Sender: FDA-Public Use
  Company Number: PHHY2013US040101

PATIENT
  Age: 65 Year
  Sex: Female

DRUGS (1)
  1. BUFFERIN EXTRA STRENGTH [Suspect]
     Indication: PAIN IN EXTREMITY
     Dosage: 1 DF, DAILY
     Route: 048

REACTIONS (2)
  - Diabetes mellitus [Unknown]
  - Incorrect dose administered [Unknown]
